FAERS Safety Report 6192646-8 (Version None)
Quarter: 2009Q2

REPORT INFORMATION
  Report Type: 
  Country: None (occurrence: None)
  Receive Date: 20090518
  Receipt Date: 20090508
  Transmission Date: 20091009
  Serious: Yes (Death, Hospitalization)
  Sender: FDA-Public Use
  Company Number: US-ROCHE-624207

PATIENT
  Sex: Male
  Weight: 74.8 kg

DRUGS (11)
  1. CAPECITABINE [Suspect]
     Dosage: THREE TABS BID M-F
     Route: 048
     Dates: start: 20090223, end: 20090326
  2. TENORMIN [Concomitant]
     Indication: CORONARY ARTERY DISEASE
     Route: 048
  3. VYTORIN [Concomitant]
     Route: 048
  4. PLAVIX [Concomitant]
     Dosage: OTHER DRUG INDICATION: CAD
  5. LEXAPRO [Concomitant]
     Indication: DEPRESSION
     Route: 048
  6. ASPIRIN [Concomitant]
     Dosage: OTHER INDICATION CAD
     Route: 048
  7. XANAX [Concomitant]
  8. FOLIC ACID [Concomitant]
  9. COUMADIN [Concomitant]
  10. RESTORIL [Concomitant]
  11. VICODIN [Concomitant]

REACTIONS (5)
  - DEHYDRATION [None]
  - DIARRHOEA [None]
  - GENERAL PHYSICAL HEALTH DETERIORATION [None]
  - NAUSEA [None]
  - VOMITING [None]
